FAERS Safety Report 6250141-1 (Version None)
Quarter: 2009Q2

REPORT INFORMATION
  Report Type: 
  Country: None (occurrence: None)
  Receive Date: 20090626
  Receipt Date: 20090610
  Transmission Date: 20091009
  Serious: Yes (Other)
  Sender: FDA-Public Use
  Company Number: 2009S1004860

PATIENT
  Age: 81 Year

DRUGS (1)
  1. PHOSPHOSODA FLAVOR NOT SPECIFIED [Suspect]
     Dosage: 90 ML; TOTAL; PO
     Route: 048
     Dates: start: 20071211, end: 20071212

REACTIONS (1)
  - RENAL FAILURE CHRONIC [None]
